FAERS Safety Report 8088247-7 (Version None)
Quarter: 2012Q1

REPORT INFORMATION
  Report Type: 
  Country: None (occurrence: None)
  Receive Date: 20120131
  Receipt Date: 20120125
  Transmission Date: 20120608
  Serious: No
  Sender: FDA-Public Use
  Company Number: US-BIOGENIDEC-2012BI003128

PATIENT
  Age: 43 Year
  Sex: Female

DRUGS (1)
  1. AVONEX [Suspect]
     Indication: MULTIPLE SCLEROSIS
     Route: 030
     Dates: start: 20111201

REACTIONS (8)
  - COUGH [None]
  - MIDDLE EAR EFFUSION [None]
  - NASOPHARYNGITIS [None]
  - GAIT DISTURBANCE [None]
  - ASTHENIA [None]
  - RETCHING [None]
  - HEADACHE [None]
  - FATIGUE [None]
